FAERS Safety Report 16846043 (Version 1)
Quarter: 2019Q3

REPORT INFORMATION
  Report Type: Spontaneous
  Country: None (occurrence: CL)
  Receive Date: 20190924
  Receipt Date: 20190924
  Transmission Date: 20191005
  Serious: Yes (Other)
  Sender: FDA-Public Use
  Company Number: CL-POPULATION COUNCIL, INC.-2074842

PATIENT
  Sex: Female

DRUGS (1)
  1. JADELLE [Suspect]
     Active Substance: LEVONORGESTREL
     Route: 059
     Dates: start: 201803

REACTIONS (2)
  - Device dislocation [None]
  - Weight loss poor [None]

NARRATIVE: CASE EVENT DATE: 201904
